FAERS Safety Report 9348302 (Version 2)
Quarter: 2013Q2

REPORT INFORMATION
  Report Type: Spontaneous
  Country: US (occurrence: US)
  Receive Date: 20130614
  Receipt Date: 20130619
  Transmission Date: 20140414
  Serious: Yes (Hospitalization, Other)
  Sender: FDA-Public Use
  Company Number: US-PFIZER INC-2013178853

PATIENT
  Age: 48 Year
  Sex: Female
  Weight: 56.69 kg

DRUGS (3)
  1. ZOLOFT [Suspect]
     Indication: BIPOLAR I DISORDER
     Dosage: UNK, 1X/DAY
     Route: 048
  2. ZOLOFT [Suspect]
     Dosage: 200 MG, UNK
     Route: 048
  3. ZOLOFT [Suspect]
     Dosage: 50 MG, UNK
     Route: 048

REACTIONS (9)
  - Drug withdrawal syndrome [Unknown]
  - Suicidal ideation [Unknown]
  - Mania [Unknown]
  - Agitation [Unknown]
  - Activities of daily living impaired [Unknown]
  - Drug ineffective [Unknown]
  - Drug intolerance [Unknown]
  - Drug dependence [Unknown]
  - Malaise [Unknown]
